FAERS Safety Report 23354888 (Version 3)
Quarter: 2024Q1

REPORT INFORMATION
  Report Type: Spontaneous
  Country: US (occurrence: US)
  Receive Date: 20240101
  Receipt Date: 20240225
  Transmission Date: 20240410
  Serious: Yes (Other)
  Sender: FDA-Public Use
  Company Number: US-PRINSTON PHARMACEUTICAL INC.-2023PRN00622

PATIENT
  Sex: Female
  Weight: 52.608 kg

DRUGS (2)
  1. CLONIDINE HYDROCHLORIDE [Suspect]
     Active Substance: CLONIDINE HYDROCHLORIDE
     Indication: Hypertension
     Dosage: 1 TABLET, 1X/DAY AT NIGHT ONCE
     Route: 048
     Dates: start: 202312, end: 20240129
  2. VALSARTAN [Suspect]
     Active Substance: VALSARTAN
     Indication: Hypertension
     Dosage: 160 MG, 2X/DAY

REACTIONS (18)
  - Hypertension [Recovered/Resolved]
  - Hot flush [Recovered/Resolved]
  - Reaction to excipient [Recovered/Resolved]
  - Visual impairment [Recovered/Resolved]
  - Dyspnoea [Recovered/Resolved]
  - Drug ineffective [Unknown]
  - Lung disorder [Recovering/Resolving]
  - Eye irritation [Unknown]
  - Nasal discomfort [Unknown]
  - Throat irritation [Unknown]
  - Fibromyalgia [Recovering/Resolving]
  - Gastroenteritis viral [Recovered/Resolved]
  - Dry mouth [Recovered/Resolved]
  - Vision blurred [Recovering/Resolving]
  - Dizziness [Recovered/Resolved]
  - Nausea [Recovered/Resolved]
  - Product substitution issue [Recovered/Resolved]
  - Product formulation issue [Unknown]

NARRATIVE: CASE EVENT DATE: 20230101
